FAERS Safety Report 24693239 (Version 1)
Quarter: 2024Q4

REPORT INFORMATION
  Report Type: Spontaneous
  Country: HR (occurrence: HR)
  Receive Date: 20241203
  Receipt Date: 20241203
  Transmission Date: 20250115
  Serious: Yes (Other)
  Sender: MERCK
  Company Number: HR-009507513-2412HRV000437

PATIENT
  Age: 54 Year

DRUGS (5)
  1. KEYTRUDA [Suspect]
     Active Substance: PEMBROLIZUMAB
  2. DOXORUBICIN [Suspect]
     Active Substance: DOXORUBICIN
  3. CYCLOPHOSPHAMIDE [Suspect]
     Active Substance: CYCLOPHOSPHAMIDE
  4. PACLITAXEL [Suspect]
     Active Substance: PACLITAXEL
  5. CARBOPLATIN [Suspect]
     Active Substance: CARBOPLATIN

REACTIONS (6)
  - Malignant neoplasm progression [Unknown]
  - Neuropathy peripheral [Unknown]
  - Therapy partial responder [Unknown]
  - Anaemia [Unknown]
  - Fatigue [Unknown]
  - Product use in unapproved indication [Unknown]
